FAERS Safety Report 8087271-8 (Version None)
Quarter: 2012Q1

REPORT INFORMATION
  Report Type: 
  Country: None (occurrence: None)
  Receive Date: 20120128
  Receipt Date: 20110513
  Transmission Date: 20120608
  Serious: No
  Sender: FDA-Public Use
  Company Number: US-ABBOTT-11P-163-0725840-00

PATIENT
  Age: 57 Year
  Sex: Female

DRUGS (8)
  1. CYMBALTA [Concomitant]
     Indication: DEPRESSION
     Dosage: 60MG DAILY
  2. LEFLUNOMIDE [Concomitant]
     Indication: RHEUMATOID ARTHRITIS
     Dosage: 20MG DAILY
  3. HUMIRA [Suspect]
     Indication: RHEUMATOID ARTHRITIS
     Dates: start: 20110513
  4. COLCHICINE [Concomitant]
     Indication: RHEUMATOID ARTHRITIS
     Dosage: DAILY
  5. NORDITRIPIN [Concomitant]
     Indication: ADRENAL DISORDER
     Dosage: 10MG - 1.5ML, 4.5 ONE HALF CLICKS DAILY
  6. METOPROLOL TARTRATE [Concomitant]
     Indication: BLOOD PRESSURE
     Dosage: 100MG DAILY
  7. HYDROCORTISONE [Concomitant]
     Indication: MENOPAUSE
     Dosage: 5MG-3 IN THE MORNING, 2 AT NIGHT
  8. TESTOSTERONE [Concomitant]
     Indication: HORMONE LEVEL ABNORMAL
     Dosage: 50MG WEEKLY

REACTIONS (3)
  - INJECTION SITE HAEMORRHAGE [None]
  - INJECTION SITE SWELLING [None]
  - INJECTION SITE PAIN [None]
